FAERS Safety Report 18248848 (Version 5)
Quarter: 2021Q1

REPORT INFORMATION
  Report Type: Report from Study
  Country: None (occurrence: US)
  Receive Date: 20200909
  Receipt Date: 20210222
  Transmission Date: 20210419
  Serious: Yes (Hospitalization, Other)
  Sender: FDA-Public Use
  Company Number: US-ABBVIE-20K-163-3553002-00

PATIENT
  Sex: Male
  Weight: 65.38 kg

DRUGS (4)
  1. HUMIRA [Suspect]
     Active Substance: ADALIMUMAB
     Indication: CROHN^S DISEASE
     Dosage: CITRATE FREE
     Route: 058
     Dates: start: 20191229
  2. IRON [Suspect]
     Active Substance: IRON
     Route: 050
     Dates: start: 202012
  3. IRON [Suspect]
     Active Substance: IRON
     Indication: ANAEMIA
     Route: 050
     Dates: start: 2020, end: 2020
  4. COVID?19 VACCINE NOS. [Suspect]
     Active Substance: COVID-19 VACCINE NOS
     Indication: COVID-19 IMMUNISATION
     Dosage: PFIZER
     Route: 030
     Dates: start: 20210206, end: 20210206

REACTIONS (11)
  - Intestinal haemorrhage [Recovered/Resolved]
  - Loss of consciousness [Recovered/Resolved]
  - Anaemia [Recovering/Resolving]
  - Constipation [Unknown]
  - Gastrointestinal haemorrhage [Recovered/Resolved]
  - Feeling abnormal [Unknown]
  - Diarrhoea [Recovered/Resolved]
  - Constipation [Recovered/Resolved]
  - Palpitations [Unknown]
  - Dyspnoea [Recovered/Resolved]
  - Hypersensitivity [Unknown]

NARRATIVE: CASE EVENT DATE: 2020
